FAERS Safety Report 6877729-9 (Version None)
Quarter: 2010Q3

REPORT INFORMATION
  Report Type: 
  Country: None (occurrence: None)
  Receive Date: 20100727
  Receipt Date: 20100625
  Transmission Date: 20110219
  Serious: No
  Sender: FDA-Public Use
  Company Number: US-ABBOTT-10P-163-0654412-00

PATIENT
  Sex: Female
  Weight: 54.48 kg

DRUGS (5)
  1. SYNTHROID [Suspect]
     Indication: HYPOTHYROIDISM
     Route: 048
     Dates: start: 19960101
  2. SYNTHROID [Suspect]
     Route: 048
     Dates: start: 19960101
  3. SYNTHROID [Suspect]
     Dates: start: 19960101
  4. SYNTHROID [Suspect]
     Dates: start: 19960101
  5. SYNTHROID [Suspect]
     Dosage: 2-50 MCG TABLETS DAILY
     Dates: start: 20100501

REACTIONS (2)
  - PRURITUS [None]
  - RASH [None]
